FAERS Safety Report 8806787 (Version 1)
Quarter: 2012Q4

REPORT INFORMATION
  Report Type: 
  Country: US (occurrence: US)
  Receive Date: 20120925
  Receipt Date: 20120925
  Transmission Date: 20130627
  Serious: Yes (Death)
  Sender: FDA-Public Use
  Company Number: US-ROCHE-1128245

PATIENT
  Sex: Male

DRUGS (3)
  1. AVASTIN [Suspect]
     Indication: MALIGNANT RESPIRATORY TRACT NEOPLASM
     Route: 065
     Dates: start: 20060116
  2. CARBOPLATIN [Concomitant]
     Route: 065
     Dates: start: 20060116
  3. TAXOTERE [Concomitant]
     Route: 065
     Dates: start: 20060116

REACTIONS (3)
  - Death [Fatal]
  - Weight decreased [Unknown]
  - Pain [Unknown]
